FAERS Safety Report 16514453 (Version 1)
Quarter: 2019Q3

REPORT INFORMATION
  Report Type: Spontaneous
  Country: CN (occurrence: CN)
  Receive Date: 20190702
  Receipt Date: 20190702
  Transmission Date: 20191004
  Serious: Yes (Hospitalization, Other)
  Sender: FDA-Public Use
  Company Number: CN-BEH-2019102326

PATIENT
  Sex: Female

DRUGS (1)
  1. ALBURX [Suspect]
     Active Substance: ALBUMIN HUMAN
     Indication: ENDOMETRIAL CANCER
     Dosage: 20 G, QD
     Route: 041
     Dates: start: 20190508

REACTIONS (4)
  - Product use in unapproved indication [Unknown]
  - Hypersensitivity [Unknown]
  - Laryngeal oedema [Unknown]
  - No adverse event [Unknown]
